FAERS Safety Report 15300073 (Version 6)
Quarter: 2019Q1

REPORT INFORMATION
  Report Type: Spontaneous
  Country: US (occurrence: US)
  Receive Date: 20180821
  Receipt Date: 20190221
  Transmission Date: 20190417
  Serious: No
  Sender: FDA-Public Use
  Company Number: US-PFIZER INC-2018333040

PATIENT
  Age: 77 Year
  Sex: Female
  Weight: 77.11 kg

DRUGS (3)
  1. SUTENT [Suspect]
     Active Substance: SUNITINIB MALATE
     Indication: RENAL CELL CARCINOMA
     Dosage: 50 MG, UNK
  2. SUTENT [Suspect]
     Active Substance: SUNITINIB MALATE
     Dosage: 37.5 MG, 1X/DAY (ONCE IN MORNING)
     Route: 048
  3. SUTENT [Suspect]
     Active Substance: SUNITINIB MALATE
     Dosage: 37.5 MG, CYCLIC (28 DAYS ON /14 DAYS OFF)

REACTIONS (10)
  - Burning sensation [Unknown]
  - Hyperkeratosis [Unknown]
  - Swelling of eyelid [Not Recovered/Not Resolved]
  - Gastrooesophageal reflux disease [Unknown]
  - Lacrimation increased [Unknown]
  - Hyperaesthesia [Unknown]
  - Pain in extremity [Unknown]
  - Rash [Unknown]
  - Eye discharge [Unknown]
  - Scab [Unknown]
